FAERS Safety Report 14895572 (Version 2)
Quarter: 2018Q2

REPORT INFORMATION
  Report Type: Report from Study
  Country: MX (occurrence: MX)
  Receive Date: 20180515
  Receipt Date: 20180525
  Transmission Date: 20180711
  Serious: Yes (Other)
  Sender: FDA-Public Use
  Company Number: PHHY2018MX006903

PATIENT
  Age: 61 Year
  Sex: Female
  Weight: 80 kg

DRUGS (2)
  1. DIOVAN [Suspect]
     Active Substance: VALSARTAN
     Indication: HYPERTENSION
     Dosage: 160 MG, QD (IN THE MORNING) (4 YEARS AGO)
     Route: 048
  2. METFORMIN [Concomitant]
     Active Substance: METFORMIN HYDROCHLORIDE
     Indication: DIABETES PROPHYLAXIS
     Dosage: 90 MG (MORNING, AFTERNOON AND NIGHT) ), TID (SINCE 1 MONTH APPROXIMATELY)
     Route: 065

REACTIONS (4)
  - Restlessness [Unknown]
  - Weight increased [Not Recovered/Not Resolved]
  - Blindness [Unknown]
  - Eye discharge [Unknown]

NARRATIVE: CASE EVENT DATE: 20180507
